FAERS Safety Report 5587251-8 (Version None)
Quarter: 2008Q1

REPORT INFORMATION
  Report Type: 
  Country: None (occurrence: None)
  Receive Date: 20080110
  Receipt Date: 20080103
  Transmission Date: 20080703
  Serious: Yes (Other)
  Sender: FDA-Public Use
  Company Number: US-PFIZER INC-2008001323

PATIENT
  Sex: Female
  Weight: 59.09 kg

DRUGS (4)
  1. AZITHROMYCIN [Suspect]
     Indication: FEELING COLD
     Route: 048
     Dates: start: 20080102, end: 20080102
  2. ATENOLOL [Concomitant]
     Route: 048
  3. MICARDIS [Concomitant]
  4. LORAZEPAM [Concomitant]
     Route: 048

REACTIONS (2)
  - HYPOAESTHESIA [None]
  - THROAT TIGHTNESS [None]
